FAERS Safety Report 10414361 (Version 2)
Quarter: 2014Q3

REPORT INFORMATION
  Report Type: Spontaneous
  Country: GB (occurrence: GB)
  Receive Date: 20140828
  Receipt Date: 20140828
  Transmission Date: 20150326
  Serious: Yes (Other)
  Sender: FDA-Public Use
  Company Number: GB-ACCORD-025427

PATIENT
  Sex: Male

DRUGS (8)
  1. ALMUS AMITRIPTYLINE [Suspect]
     Active Substance: AMITRIPTYLINE
     Indication: FIBROMYALGIA
     Dosage: INITIAL START DOSE WAS 10 MG AT NIGHT AND THEN  INCREASED TO A LEVEL WHERE BENEFIT WAS OCCURRING.
  2. ZOMORPH [Concomitant]
     Active Substance: MORPHINE SULFATE
  3. GLENMARK PRAMIPEXOLE [Concomitant]
  4. ALMUS OMEPRAZOLE [Concomitant]
  5. PFIZER PREGABALIN [Concomitant]
  6. PARACETAMOL [Concomitant]
     Active Substance: ACETAMINOPHEN
  7. ALMUS PROPRANOLOL [Concomitant]
  8. ACCORD AMITRIPTYLINE [Suspect]
     Active Substance: AMITRIPTYLINE
     Indication: FIBROMYALGIA
     Dosage: INITIAL START DOSE 10 MG NIGHT, THEN  INCREASED TO LEVEL WHERE BENEFIT WAS OCCURRING.

REACTIONS (8)
  - Dry mouth [Not Recovered/Not Resolved]
  - Joint swelling [Unknown]
  - Fall [None]
  - Off label use [Unknown]
  - Pruritus [Unknown]
  - Discomfort [None]
  - Urinary retention [Not Recovered/Not Resolved]
  - Neuropathy peripheral [None]
